FAERS Safety Report 15869142 (Version 1)
Quarter: 2019Q1

REPORT INFORMATION
  Report Type: Spontaneous
  Country: FR (occurrence: FR)
  Receive Date: 20190125
  Receipt Date: 20190125
  Transmission Date: 20190417
  Serious: Yes (Hospitalization)
  Sender: FDA-Public Use
  Company Number: FR-PURDUE-GBR-2019-0063552

PATIENT
  Age: 85 Year
  Sex: Female

DRUGS (6)
  1. MIANSERINE [Concomitant]
     Active Substance: MIANSERIN HYDROCHLORIDE
  2. RAMIPRIL. [Suspect]
     Active Substance: RAMIPRIL
     Indication: HYPERTENSION
     Dosage: 5 MG, DAILY
     Route: 048
     Dates: end: 20181205
  3. DISCOTRINE [Concomitant]
     Active Substance: NITROGLYCERIN
     Dosage: UNK
  4. OXYNORMORO [Suspect]
     Active Substance: OXYCODONE HYDROCHLORIDE
     Indication: PAIN
     Dosage: UNK, STRENGTH 5MG
     Route: 048
     Dates: end: 20181205
  5. KARDEGIC [Concomitant]
     Active Substance: ASPIRIN DL-LYSINE
     Dosage: 75 MG, UNK
  6. COLCHICINE. [Suspect]
     Active Substance: COLCHICINE
     Indication: CHONDROCALCINOSIS
     Route: 048
     Dates: start: 20181122, end: 20181204

REACTIONS (3)
  - Hyperkalaemia [Recovered/Resolved]
  - Diarrhoea [Recovered/Resolved]
  - Acute kidney injury [Recovered/Resolved]

NARRATIVE: CASE EVENT DATE: 201812
